FAERS Safety Report 4446970-7 (Version None)
Quarter: 2004Q3

REPORT INFORMATION
  Report Type: 
  Country: None (occurrence: None)
  Receive Date: 20040812
  Receipt Date: 20040511
  Transmission Date: 20050211
  Serious: Yes (Hospitalization)
  Sender: FDA-Public Use
  Company Number: USA040566824

PATIENT
  Age: 27 Year
  Sex: Male
  Weight: 101 kg

DRUGS (1)
  1. CIALIS [Suspect]
     Dates: start: 20040503

REACTIONS (1)
  - PRIAPISM [None]
